FAERS Safety Report 14842434 (Version 1)
Quarter: 2018Q2

REPORT INFORMATION
  Report Type: Spontaneous
  Country: US (occurrence: US)
  Receive Date: 20180503
  Receipt Date: 20180503
  Transmission Date: 20180711
  Serious: Yes (Other)
  Sender: FDA-Public Use
  Company Number: US-UNITED THERAPEUTICS-UNT-2018-003662

PATIENT
  Sex: Female

DRUGS (2)
  1. WELLBUTRIN [Suspect]
     Active Substance: BUPROPION HYDROCHLORIDE
     Indication: PRODUCT USED FOR UNKNOWN INDICATION
     Dosage: UNK
     Route: 065
     Dates: end: 201803
  2. REMODULIN [Suspect]
     Active Substance: TREPROSTINIL
     Indication: PULMONARY ARTERIAL HYPERTENSION
     Dosage: 0.0165 ?G/KG, CONTINUING
     Route: 058
     Dates: start: 20121229

REACTIONS (9)
  - Diarrhoea [Unknown]
  - Decreased appetite [Unknown]
  - Gastrointestinal polyp haemorrhage [Unknown]
  - Tremor [Unknown]
  - Headache [Unknown]
  - Nausea [Unknown]
  - Blood iron decreased [Unknown]
  - Fatigue [Unknown]
  - Dizziness [Unknown]
